FAERS Safety Report 24165383 (Version 2)
Quarter: 2024Q4

REPORT INFORMATION
  Report Type: Spontaneous
  Country: DE (occurrence: DE)
  Receive Date: 20240802
  Receipt Date: 20241028
  Transmission Date: 20250115
  Serious: Yes (Other)
  Sender: AMGEN
  Company Number: DE-002147023-NVSC2024DE152528

PATIENT
  Sex: Male

DRUGS (3)
  1. AIMOVIG [Suspect]
     Active Substance: ERENUMAB-AOOE
     Indication: Migraine
     Dosage: UNK
     Route: 065
     Dates: start: 20230904
  2. AIMOVIG [Suspect]
     Active Substance: ERENUMAB-AOOE
     Dosage: UNK
     Route: 065
     Dates: start: 20231004
  3. AIMOVIG [Suspect]
     Active Substance: ERENUMAB-AOOE
     Dosage: UNK
     Route: 065
     Dates: start: 20231104

REACTIONS (9)
  - Cerebrovascular accident [Unknown]
  - Migraine [Unknown]
  - Nausea [Unknown]
  - Aphasia [Unknown]
  - Decreased appetite [Unknown]
  - Retching [Unknown]
  - Vomiting [Unknown]
  - Sensation of foreign body [Unknown]
  - Weight decreased [Unknown]
